FAERS Safety Report 13359222 (Version 5)
Quarter: 2018Q4

REPORT INFORMATION
  Report Type: Spontaneous
  Country: DE (occurrence: DE)
  Receive Date: 20170322
  Receipt Date: 20181107
  Transmission Date: 20190204
  Serious: Yes (Other)
  Sender: FDA-Public Use
  Company Number: DE-009507513-1305DEU008251

PATIENT
  Age: 27 Year
  Sex: Female

DRUGS (1)
  1. NUVARING [Suspect]
     Active Substance: ETHINYL ESTRADIOL\ETONOGESTREL
     Indication: CONTRACEPTION
     Dosage: 1 VAGINAL RING
     Route: 067

REACTIONS (25)
  - Oral herpes [Not Recovered/Not Resolved]
  - Cough [Not Recovered/Not Resolved]
  - Vaginal haemorrhage [Unknown]
  - Vaginal discharge [Unknown]
  - Incorrect product administration duration [Unknown]
  - Vulvovaginal mycotic infection [Not Recovered/Not Resolved]
  - Eczema [Unknown]
  - Vaginal infection [Recovered/Resolved]
  - Incorrect product administration duration [Unknown]
  - Cystitis bacterial [Unknown]
  - Conjunctivitis [Recovered/Resolved]
  - Abdominal pain [Unknown]
  - Bacterial vaginosis [Unknown]
  - Cervix disorder [Unknown]
  - Vulvovaginal mycotic infection [Unknown]
  - Vulvovaginal mycotic infection [Unknown]
  - Metrorrhagia [Unknown]
  - Vaginal haemorrhage [Unknown]
  - Eczema [Unknown]
  - Tonsillitis [Unknown]
  - Metrorrhagia [Not Recovered/Not Resolved]
  - Vulvovaginal mycotic infection [Unknown]
  - Inflammation [Unknown]
  - Vaginal discharge [Not Recovered/Not Resolved]
  - Product use in unapproved indication [Unknown]

NARRATIVE: CASE EVENT DATE: 201305
